FAERS Safety Report 12635162 (Version 1)
Quarter: 2016Q3

REPORT INFORMATION
  Report Type: Not Available
  Country: GB (occurrence: GB)
  Receive Date: 20160808
  Receipt Date: 20160808
  Transmission Date: 20161109
  Serious: Yes (Hospitalization)
  Sender: FDA-Public Use
  Company Number: GB-MUNDIPHARMA DS AND PHARMACOVIGILANCE-GBR-2016-0039375

PATIENT
  Age: 78 Year
  Sex: Male
  Weight: 107 kg

DRUGS (14)
  1. ASPIRIN. [Concomitant]
     Active Substance: ASPIRIN
  2. CITALOPRAM [Concomitant]
     Active Substance: CITALOPRAM HYDROBROMIDE
     Dosage: UNK
     Dates: end: 20160712
  3. AMIODARONE [Interacting]
     Active Substance: AMIODARONE
     Indication: VENTRICULAR TACHYCARDIA
     Dosage: UNK
     Route: 048
     Dates: start: 20160711
  4. DUTASTERIDE. [Concomitant]
     Active Substance: DUTASTERIDE
  5. OMEPRAZOLE. [Concomitant]
     Active Substance: OMEPRAZOLE
  6. SERTRALINE [Concomitant]
     Active Substance: SERTRALINE HYDROCHLORIDE
     Dosage: UNK
     Dates: start: 20160712
  7. ALENDRONIC ACID [Concomitant]
     Active Substance: ALENDRONIC ACID
  8. LISINOPRIL. [Concomitant]
     Active Substance: LISINOPRIL
  9. BISOPROLOL [Concomitant]
     Active Substance: BISOPROLOL
  10. FUROSEMIDE. [Concomitant]
     Active Substance: FUROSEMIDE
  11. THEOPHYLLINE [Suspect]
     Active Substance: THEOPHYLLINE ANHYDROUS
     Indication: ASTHMA
     Dosage: 700 MG, UNK
     Route: 048
  12. THEOPHYLLINE [Interacting]
     Active Substance: THEOPHYLLINE ANHYDROUS
     Indication: CHRONIC OBSTRUCTIVE PULMONARY DISEASE
  13. ISOSORBIDE MONONITRATE. [Concomitant]
     Active Substance: ISOSORBIDE MONONITRATE
  14. TIOTROPIUM BROMIDE [Concomitant]
     Active Substance: TIOTROPIUM BROMIDE

REACTIONS (4)
  - Aggression [Unknown]
  - Anxiety [Unknown]
  - Drug level increased [Unknown]
  - Potentiating drug interaction [Not Recovered/Not Resolved]
